FAERS Safety Report 16995982 (Version 8)
Quarter: 2019Q4

REPORT INFORMATION
  Report Type: Spontaneous
  Country: US (occurrence: US)
  Receive Date: 20191105
  Receipt Date: 20191230
  Transmission Date: 20200122
  Serious: No
  Sender: FDA-Public Use
  Company Number: US-PFIZER INC-2019475626

PATIENT
  Age: 71 Year
  Sex: Female
  Weight: 42.18 kg

DRUGS (1)
  1. LATANOPROST. [Suspect]
     Active Substance: LATANOPROST
     Indication: OCULAR HYPERTENSION
     Dosage: 2 GTT, 1X/DAY (ONE DROP IN EACH EYE AT BEDTIME)
     Dates: start: 20191021

REACTIONS (1)
  - Underweight [Unknown]
